FAERS Safety Report 17026178 (Version 1)
Quarter: 2019Q4

REPORT INFORMATION
  Report Type: Spontaneous
  Country: NL (occurrence: FR)
  Receive Date: 20191113
  Receipt Date: 20191113
  Transmission Date: 20200122
  Serious: Yes (Hospitalization)
  Sender: FDA-Public Use
  Company Number: FR-FRESENIUS KABI-FK201912265

PATIENT
  Age: 11 Year
  Sex: Female
  Weight: 61.1 kg

DRUGS (2)
  1. METHYLPREDNISOLONE SODIUM SUCCINATE. [Suspect]
     Active Substance: METHYLPREDNISOLONE SODIUM SUCCINATE
     Indication: ENCEPHALOMYELITIS
     Dosage: UNKNOWN DOSAGE
     Route: 042
     Dates: start: 20190925, end: 20190925
  2. GLUCOSE (MANUFACTURER UNKNOWN) [Suspect]
     Active Substance: DEXTROSE
     Indication: ENCEPHALOMYELITIS
     Dosage: UNKNOWN DOSAGE
     Route: 042
     Dates: start: 20190925, end: 20190925

REACTIONS (2)
  - Product preparation error [Recovered/Resolved]
  - Blood glucose increased [Recovered/Resolved]

NARRATIVE: CASE EVENT DATE: 20190925
